FAERS Safety Report 5942817-8 (Version None)
Quarter: 2008Q4

REPORT INFORMATION
  Report Type: 
  Country: None (occurrence: None)
  Receive Date: 20081103
  Receipt Date: 20081023
  Transmission Date: 20090506
  Serious: Yes (Hospitalization)
  Sender: FDA-Public Use
  Company Number: 2008BI009572

PATIENT
  Age: 48 Year
  Sex: Female
  Weight: 84.8226 kg

DRUGS (13)
  1. AVONEX [Suspect]
     Indication: MULTIPLE SCLEROSIS
     Dosage: 30 UG, QW; IM
     Route: 030
     Dates: start: 20011101, end: 20030801
  2. AVONEX [Suspect]
     Indication: MULTIPLE SCLEROSIS
     Dosage: 30 UG, QW; IM
     Route: 030
     Dates: start: 20030801
  3. SYNTHROID [Concomitant]
  4. BENAZEPRIL HYDROCHLORIDE [Concomitant]
  5. LORATADINE [Concomitant]
  6. MULTI-VITAMIN [Concomitant]
  7. VITAMIN B-12 [Concomitant]
  8. OS CAL [Concomitant]
  9. FOLIC ACID [Concomitant]
  10. KLONOPIN [Concomitant]
  11. IBUPROFEN TABLETS [Concomitant]
  12. EXCEDRIN [Concomitant]
  13. PREV MEDS [Concomitant]

REACTIONS (8)
  - HYSTERECTOMY [None]
  - MEDICAL DEVICE PAIN [None]
  - MENORRHAGIA [None]
  - MULTIPLE SCLEROSIS [None]
  - OVARIAN CYST [None]
  - PELVIC MASS [None]
  - PROCEDURAL PAIN [None]
  - VAGINAL CYST [None]
